FAERS Safety Report 25256836 (Version 1)
Quarter: 2025Q2

REPORT INFORMATION
  Report Type: Spontaneous
  Country: FR (occurrence: FR)
  Receive Date: 20250430
  Receipt Date: 20250430
  Transmission Date: 20250716
  Serious: Yes (Life-Threatening, Hospitalization, Other)
  Sender: GILEAD
  Company Number: None

PATIENT
  Age: 70 Year
  Sex: Male
  Weight: 90 kg

DRUGS (11)
  1. YESCARTA [Suspect]
     Active Substance: AXICABTAGENE CILOLEUCEL
     Indication: B-cell lymphoma
     Route: 042
     Dates: start: 20221017, end: 20221017
  2. CYCLOPHOSPHAMIDE [Suspect]
     Active Substance: CYCLOPHOSPHAMIDE
     Indication: Lymphodepletion
     Dosage: 500 MG/M2 ((MILLIGRAM PER SQUARE METRE), QD
     Route: 042
     Dates: start: 20221012, end: 20221014
  3. ONDANSETRON HYDROCHLORIDE [Suspect]
     Active Substance: ONDANSETRON HYDROCHLORIDE
     Indication: Nausea
     Route: 042
     Dates: start: 20221012, end: 20221018
  4. APREPITANT [Suspect]
     Active Substance: APREPITANT
     Indication: Nausea
     Dosage: 1 DOSAGE FORM, QD
     Route: 048
     Dates: start: 20221012, end: 20221018
  5. PREGABALIN [Concomitant]
     Active Substance: PREGABALIN
  6. ATOVAQUONE [Concomitant]
     Active Substance: ATOVAQUONE
  7. VALACYCLOVIR HYDROCHLORIDE [Concomitant]
     Active Substance: VALACYCLOVIR HYDROCHLORIDE
  8. GLIMEPIRIDE [Concomitant]
     Active Substance: GLIMEPIRIDE
  9. KARDEGIC [Concomitant]
     Active Substance: ASPIRIN DL-LYSINE
  10. ZOPICLONE [Concomitant]
     Active Substance: ZOPICLONE
  11. EZETIMIBE [Concomitant]
     Active Substance: EZETIMIBE

REACTIONS (4)
  - Immune effector cell-associated neurotoxicity syndrome [Recovered/Resolved with Sequelae]
  - Encephalopathy [Recovered/Resolved with Sequelae]
  - Interstitial lung disease [Recovered/Resolved]
  - Cytokine release syndrome [Recovered/Resolved]

NARRATIVE: CASE EVENT DATE: 20221018
